FAERS Safety Report 17565819 (Version 1)
Quarter: 2020Q1

REPORT INFORMATION
  Report Type: Spontaneous
  Country: CO (occurrence: CO)
  Receive Date: 20200320
  Receipt Date: 20200320
  Transmission Date: 20200409
  Serious: Yes (Life-Threatening, Hospitalization, Other)
  Sender: FDA-Public Use
  Company Number: CO-SCIEGEN PHARMACEUTICALS INC-2020SCILIT00064

PATIENT
  Age: 82 Year
  Sex: Male

DRUGS (9)
  1. DIPHENHYDRAMINE. [Interacting]
     Active Substance: DIPHENHYDRAMINE
  2. ATORVASTATIN CALCIUM. [Suspect]
     Active Substance: ATORVASTATIN CALCIUM
  3. VERAPAMIL [Concomitant]
     Active Substance: VERAPAMIL HYDROCHLORIDE
  4. BECLOMETASONE [Interacting]
     Active Substance: BECLOMETHASONE DIPROPIONATE
  5. RANITIDINE. [Interacting]
     Active Substance: RANITIDINE
  6. HYDROCORTISONE. [Interacting]
     Active Substance: HYDROCORTISONE
  7. METFORMIN [Concomitant]
     Active Substance: METFORMIN HYDROCHLORIDE
  8. CAPTOPRIL. [Concomitant]
     Active Substance: CAPTOPRIL
  9. ASPIRIN. [Concomitant]
     Active Substance: ASPIRIN

REACTIONS (1)
  - Drug reaction with eosinophilia and systemic symptoms [Recovered/Resolved]
